FAERS Safety Report 17228655 (Version 1)
Quarter: 2020Q1

REPORT INFORMATION
  Report Type: Spontaneous
  Country: US (occurrence: US)
  Receive Date: 20200102
  Receipt Date: 20200102
  Transmission Date: 20200409
  Serious: No
  Sender: FDA-Public Use
  Company Number: None

PATIENT
  Age: 89 Year
  Sex: Female
  Weight: 123.75 kg

DRUGS (3)
  1. GAMUNEX [Suspect]
     Active Substance: HUMAN IMMUNOGLOBULIN G
     Indication: CHRONIC INFLAMMATORY DEMYELINATING POLYRADICULONEUROPATHY
     Dosage: ?          OTHER FREQUENCY:EVERY 2 WEEKS;?
     Route: 041
     Dates: start: 20200102, end: 20200102
  2. TYLENOL 650MG [Concomitant]
     Dates: start: 20200102, end: 20200102
  3. BENADRYL 25MG [Concomitant]
     Dates: start: 20200102, end: 20200102

REACTIONS (2)
  - Skin burning sensation [None]
  - Rash [None]

NARRATIVE: CASE EVENT DATE: 20200102
